FAERS Safety Report 4973801-9 (Version None)
Quarter: 2006Q2

REPORT INFORMATION
  Report Type: 
  Country: None (occurrence: None)
  Receive Date: 20060414
  Receipt Date: 20060301
  Transmission Date: 20061013
  Serious: Yes (Hospitalization, Disabling)
  Sender: FDA-Public Use
  Company Number: US-MERCK-0603USA00449

PATIENT
  Sex: Male
  Weight: 89 kg

DRUGS (2)
  1. VIOXX [Suspect]
     Indication: ARTHRITIS
     Route: 048
     Dates: start: 19990101, end: 20040101
  2. FLEXERIL [Concomitant]
     Route: 065

REACTIONS (14)
  - BACK INJURY [None]
  - CARDIAC DISORDER [None]
  - CHEST PAIN [None]
  - DYSPNOEA [None]
  - GASTRIC PERFORATION [None]
  - HEART RATE INCREASED [None]
  - HYPERTENSION [None]
  - LIVER DISORDER [None]
  - NEPHROLITHIASIS [None]
  - OVERDOSE [None]
  - PALPITATIONS [None]
  - POST-TRAUMATIC STRESS DISORDER [None]
  - RENAL DISORDER [None]
  - ROTATOR CUFF SYNDROME [None]
